FAERS Safety Report 23549592 (Version 1)
Quarter: 2024Q1

REPORT INFORMATION
  Report Type: Report from Study
  Country: CA (occurrence: CA)
  Receive Date: 20240221
  Receipt Date: 20240221
  Transmission Date: 20240410
  Serious: Yes (Other)
  Sender: FDA-Public Use
  Company Number: CA-BAUSCH-BL-2022-018343

PATIENT
  Sex: Female

DRUGS (20)
  1. CONTRAVE [Suspect]
     Active Substance: BUPROPION HYDROCHLORIDE\NALTREXONE HYDROCHLORIDE
     Indication: Weight control
     Dosage: 90/8MG, 1 TAB Q AM
     Route: 048
     Dates: start: 20220624, end: 202206
  2. CONTRAVE [Suspect]
     Active Substance: BUPROPION HYDROCHLORIDE\NALTREXONE HYDROCHLORIDE
     Dosage: 90/8MG, 1 TAB Q AM 1 TAB Q PM
     Route: 048
     Dates: start: 20220701, end: 202207
  3. CONTRAVE [Suspect]
     Active Substance: BUPROPION HYDROCHLORIDE\NALTREXONE HYDROCHLORIDE
     Dosage: 90/8MG, 2 TAB Q AM 1 TAB Q PM
     Route: 048
     Dates: start: 20220708, end: 202207
  4. CONTRAVE [Suspect]
     Active Substance: BUPROPION HYDROCHLORIDE\NALTREXONE HYDROCHLORIDE
     Dosage: 90/8MG, 1 TAB Q AM 2 TAB Q PM
     Route: 048
     Dates: start: 202207, end: 202207
  5. CONTRAVE [Suspect]
     Active Substance: BUPROPION HYDROCHLORIDE\NALTREXONE HYDROCHLORIDE
     Dosage: 90/8MG, 1 TAB Q AM 1 TAB Q PM
     Route: 048
     Dates: start: 20220718, end: 20230125
  6. CONTRAVE [Suspect]
     Active Substance: BUPROPION HYDROCHLORIDE\NALTREXONE HYDROCHLORIDE
     Dosage: 90/8MG, 1 TAB Q AM, 2 TAB Q PM
     Route: 048
     Dates: start: 20230126, end: 2023
  7. CONTRAVE [Suspect]
     Active Substance: BUPROPION HYDROCHLORIDE\NALTREXONE HYDROCHLORIDE
     Dosage: 90/8MG, 1 TAB Q AM, 2 TAB Q PM
     Route: 048
     Dates: start: 20230226, end: 20230814
  8. CONTRAVE [Suspect]
     Active Substance: BUPROPION HYDROCHLORIDE\NALTREXONE HYDROCHLORIDE
     Dosage: 90/8MG, 1 TAB Q AM, 1 TAB Q PM
     Route: 048
     Dates: start: 20230815, end: 20240114
  9. CONTRAVE [Suspect]
     Active Substance: BUPROPION HYDROCHLORIDE\NALTREXONE HYDROCHLORIDE
     Dosage: 90/8MG, 2 TAB Q AM, 1 TAB Q PM
     Route: 048
     Dates: start: 20240115
  10. ZOLOFT [Suspect]
     Active Substance: SERTRALINE HYDROCHLORIDE
     Indication: Depression
     Dosage: 50 MG,1 IN 24 HR
     Route: 048
     Dates: start: 20230701, end: 2023
  11. ZOLOFT [Suspect]
     Active Substance: SERTRALINE HYDROCHLORIDE
     Indication: Anxiety
     Dosage: (25 MG)
     Route: 048
     Dates: start: 202311, end: 202401
  12. NAPROXEN [Concomitant]
     Active Substance: NAPROXEN
     Indication: Headache
     Dosage: PRN (1 IN 1 AS REQUIRED)
     Route: 048
  13. BACLOFEN [Concomitant]
     Active Substance: BACLOFEN
     Indication: Neck pain
     Dosage: PRN (1 IN 1 AS REQUIRED)
     Route: 048
  14. PERINDOPRIL [Concomitant]
     Active Substance: PERINDOPRIL
     Indication: Hypertension
     Dosage: 1 IN 1 D
     Route: 048
  15. SYNTHROID [Concomitant]
     Active Substance: LEVOTHYROXINE SODIUM
     Indication: Autoimmune thyroiditis
     Dosage: 1 IN 1 D
     Route: 048
  16. AMLODIPINE [Concomitant]
     Active Substance: AMLODIPINE BESYLATE
     Indication: Hypertension
     Dosage: 1 IN 1 D
     Route: 048
  17. FERROMAX [Concomitant]
     Indication: Blood iron decreased
     Dosage: 1 IN 1 D
     Route: 048
     Dates: start: 20230417
  18. MAGNESIUM GLYCINATE [Concomitant]
     Active Substance: MAGNESIUM GLYCINATE
     Indication: Supplementation therapy
     Dosage: 1 IN 1 D
     Route: 048
     Dates: start: 20230417
  19. VITAMIN D [Concomitant]
     Active Substance: VITAMIN D NOS
     Indication: Supplementation therapy
     Dosage: 1 IN 1 D
     Route: 048
     Dates: start: 20230417
  20. GLUCOSAMINE [Concomitant]
     Active Substance: GLUCOSAMINE
     Indication: Supplementation therapy
     Dosage: 1 IN 1 D
     Route: 048
     Dates: start: 20230417

REACTIONS (39)
  - Hypothyroidism [Not Recovered/Not Resolved]
  - Cold sweat [Recovering/Resolving]
  - Irritable bowel syndrome [Recovered/Resolved]
  - Temperature intolerance [Not Recovered/Not Resolved]
  - Blepharospasm [Recovered/Resolved]
  - Taste disorder [Not Recovered/Not Resolved]
  - Pain [Not Recovered/Not Resolved]
  - Muscle twitching [Unknown]
  - Fluid retention [Not Recovered/Not Resolved]
  - Migraine [Recovered/Resolved]
  - Dysmenorrhoea [Not Recovered/Not Resolved]
  - Blood iron decreased [Not Recovered/Not Resolved]
  - Abdominal distension [Not Recovered/Not Resolved]
  - Muscle tightness [Not Recovered/Not Resolved]
  - Symptom recurrence [Unknown]
  - Weight increased [Unknown]
  - Carpal tunnel syndrome [Not Recovered/Not Resolved]
  - Back pain [Not Recovered/Not Resolved]
  - Condition aggravated [Not Recovered/Not Resolved]
  - Generalised oedema [Not Recovered/Not Resolved]
  - Mental disorder [Unknown]
  - Energy increased [Unknown]
  - Influenza [Not Recovered/Not Resolved]
  - Nausea [Not Recovered/Not Resolved]
  - Tremor [Recovered/Resolved]
  - Asthenia [Not Recovered/Not Resolved]
  - Diarrhoea [Not Recovered/Not Resolved]
  - Hot flush [Not Recovered/Not Resolved]
  - Fatigue [Not Recovered/Not Resolved]
  - Headache [Not Recovered/Not Resolved]
  - Anxiety [Recovered/Resolved]
  - Depression [Recovered/Resolved]
  - Feeling abnormal [Not Recovered/Not Resolved]
  - Stress [Unknown]
  - Drug interaction [Unknown]
  - Labelled drug-drug interaction issue [Unknown]
  - Therapeutic response unexpected [Unknown]
  - Patient dissatisfaction with treatment [Unknown]
  - Intentional product use issue [Unknown]

NARRATIVE: CASE EVENT DATE: 20220101
